FAERS Safety Report 12722408 (Version 2)
Quarter: 2016Q4

REPORT INFORMATION
  Report Type: Spontaneous
  Country: US (occurrence: US)
  Receive Date: 20160907
  Receipt Date: 20161026
  Transmission Date: 20170207
  Serious: Yes (Other)
  Sender: FDA-Public Use
  Company Number: US-BAYER-2016-173438

PATIENT
  Age: 81 Year
  Sex: Female
  Weight: 89.8 kg

DRUGS (12)
  1. CIPRO [Suspect]
     Active Substance: CIPROFLOXACIN HYDROCHLORIDE
     Indication: DIVERTICULITIS
     Dosage: 500 MG, BID
     Route: 048
     Dates: start: 2016
  2. CALCIFEROL [Concomitant]
     Active Substance: ERGOCALCIFEROL
     Dosage: 500 MG, UNK
     Route: 048
  3. SOTALOL HYDROCHLORIDE. [Concomitant]
     Active Substance: SOTALOL HYDROCHLORIDE
     Dosage: 80 MG, 0.5 TABLET TWICE DAILY
     Route: 048
  4. METFORMIN HCL [Concomitant]
     Active Substance: METFORMIN HYDROCHLORIDE
     Dosage: 500 MG, TAKE 1 TABLET IN AM AND 2 TABLETS IN PM
     Route: 048
  5. LUTEIN [Concomitant]
     Active Substance: LUTEIN
     Dosage: 1 DF, BID
  6. SIMBRINZA [Concomitant]
     Active Substance: BRIMONIDINE TARTRATE\BRINZOLAMIDE
     Dosage: 3 DROP DAILY LEFT EYE
  7. TRAVATAN [Concomitant]
     Active Substance: TRAVOPROST
     Dosage: 1 DROP BED TIME
     Route: 047
  8. CALCIUM [Concomitant]
     Active Substance: CALCIUM
     Dosage: 750 MG, UNK
     Route: 048
  9. FLORASTOR [Concomitant]
     Active Substance: SACCHAROMYCES CEREVISIAE
     Dosage: UNK
  10. LEVOTHYROXINE SODIUM. [Concomitant]
     Active Substance: LEVOTHYROXINE SODIUM
     Dosage: 75 ?G, QD
     Route: 048
  11. PRADAXA [Concomitant]
     Active Substance: DABIGATRAN ETEXILATE MESYLATE
     Dosage: 150 MG, BID
     Route: 048
     Dates: start: 2010
  12. VITAMIN K [Concomitant]
     Active Substance: PHYTONADIONE
     Dosage: 40 MG, UNK
     Route: 048

REACTIONS (26)
  - Diabetes mellitus [None]
  - Upper respiratory tract infection [None]
  - Dysphagia [None]
  - Oropharyngeal pain [None]
  - Bone disorder [None]
  - Fatigue [None]
  - Muscle spasms [None]
  - Osteopenia [None]
  - Joint dislocation [None]
  - Hypoacusis [None]
  - Head discomfort [None]
  - Abdominal discomfort [None]
  - Myalgia [None]
  - Sleep apnoea syndrome [None]
  - Product use issue [None]
  - Cardiac pacemaker insertion [None]
  - Atrial fibrillation [None]
  - Hypothyroidism [None]
  - Vitamin D deficiency [None]
  - Neoplasm skin [None]
  - Glaucoma [None]
  - Myositis [None]
  - Macular degeneration [None]
  - Polyarthritis [None]
  - Arthralgia [None]
  - Hyperlipidaemia [None]

NARRATIVE: CASE EVENT DATE: 20160701
